FAERS Safety Report 16561510 (Version 1)
Quarter: 2019Q3

REPORT INFORMATION
  Report Type: Spontaneous
  Country: CN (occurrence: CN)
  Receive Date: 20190711
  Receipt Date: 20190711
  Transmission Date: 20191004
  Serious: Yes (Other)
  Sender: FDA-Public Use
  Company Number: CN-B.I. PHARMACEUTICALS,INC./RIDGEFIELD-2019-MI-000615

PATIENT
  Age: 70 Year
  Sex: Female

DRUGS (1)
  1. SIFROL [Suspect]
     Active Substance: PRAMIPEXOLE
     Indication: PRODUCT USED FOR UNKNOWN INDICATION
     Dosage: 0.125MG TID (YEATERDAY NOON, EVENING AND THIS MORNING RESPECTIVELY)
     Route: 048
     Dates: start: 20190704, end: 20190705

REACTIONS (4)
  - Dizziness [Recovering/Resolving]
  - Diet refusal [Recovering/Resolving]
  - Cardiac disorder [Recovering/Resolving]
  - Unevaluable event [Recovering/Resolving]

NARRATIVE: CASE EVENT DATE: 20190705
